FAERS Safety Report 5891601-2 (Version None)
Quarter: 2008Q3

REPORT INFORMATION
  Report Type: 
  Country: None (occurrence: None)
  Receive Date: 20080918
  Receipt Date: 20080904
  Transmission Date: 20090109
  Serious: Yes (Hospitalization)
  Sender: FDA-Public Use
  Company Number: 2008002215

PATIENT
  Age: 62 Year
  Sex: Male

DRUGS (1)
  1. TARCEVA (ERLOTINAB) (TABLET) (ERLOTINIB) [Suspect]
     Indication: LUNG ADENOCARCINOMA
     Dosage: ORAL
     Route: 048
     Dates: start: 20080317, end: 20080417

REACTIONS (1)
  - CUTANEOUS VASCULITIS [None]
